FAERS Safety Report 10749957 (Version 2)
Quarter: 2015Q1

REPORT INFORMATION
  Report Type: Spontaneous
  Country: US (occurrence: US)
  Receive Date: 20150129
  Receipt Date: 20150224
  Transmission Date: 20150721
  Serious: No
  Sender: FDA-Public Use
  Company Number: US-GILEAD-2015-0134482

PATIENT
  Age: 78 Year
  Sex: Male

DRUGS (17)
  1. COENZYME Q10 [Concomitant]
     Active Substance: UBIDECARENONE
  2. GLYBURIDE. [Concomitant]
     Active Substance: GLYBURIDE
  3. LOSARTAN [Concomitant]
     Active Substance: LOSARTAN
  4. ATENOLOL. [Concomitant]
     Active Substance: ATENOLOL
  5. LETAIRIS [Suspect]
     Active Substance: AMBRISENTAN
     Dosage: 5 MG, QD
     Route: 065
     Dates: start: 20141027
  6. CENTRUM SILVER                     /02363801/ [Concomitant]
     Active Substance: VITAMINS
  7. STOOL SOFTENER [Concomitant]
     Active Substance: DOCUSATE CALCIUM
  8. PANTOPRAZOLE [Concomitant]
     Active Substance: PANTOPRAZOLE SODIUM
  9. LETAIRIS [Suspect]
     Active Substance: AMBRISENTAN
     Indication: PULMONARY ARTERIAL HYPERTENSION
     Dosage: 10 MG, QD
     Route: 065
     Dates: end: 20150116
  10. LEVOTHYROXINE [Concomitant]
     Active Substance: LEVOTHYROXINE
  11. ANAGRELIDE [Concomitant]
     Active Substance: ANAGRELIDE
  12. ZYTIGA [Concomitant]
     Active Substance: ABIRATERONE ACETATE
  13. ATORVASTATIN [Concomitant]
     Active Substance: ATORVASTATIN
  14. VERAPAMIL [Suspect]
     Active Substance: VERAPAMIL HYDROCHLORIDE
     Indication: PRODUCT USED FOR UNKNOWN INDICATION
     Route: 065
  15. FISH OIL [Concomitant]
     Active Substance: FISH OIL
  16. XARELTO [Concomitant]
     Active Substance: RIVAROXABAN
  17. PREDNISONE. [Concomitant]
     Active Substance: PREDNISONE

REACTIONS (4)
  - Confusional state [Recovering/Resolving]
  - Feeling abnormal [Recovering/Resolving]
  - Lethargy [Recovering/Resolving]
  - Fatigue [Recovering/Resolving]
